FAERS Safety Report 18609489 (Version 2)
Quarter: 2021Q1

REPORT INFORMATION
  Report Type: Spontaneous
  Country: SE (occurrence: SE)
  Receive Date: 20201214
  Receipt Date: 20210331
  Transmission Date: 20210419
  Serious: Yes (Death)
  Sender: FDA-Public Use
  Company Number: SE-ACCORD-210537

PATIENT
  Age: 65 Year
  Sex: Male

DRUGS (18)
  1. JANUVIA [Concomitant]
     Active Substance: SITAGLIPTIN PHOSPHATE
     Dosage: STRENGTH? 100 MG
     Dates: start: 20170908
  2. METFORMIN [Concomitant]
     Active Substance: METFORMIN HYDROCHLORIDE
     Dates: start: 20170907
  3. ALVEDON [Concomitant]
     Active Substance: ACETAMINOPHEN
     Dosage: STRENGTH?500 MG, 2 TABLETS IF NEEDED 3 TIMES DAILY
     Dates: start: 20200812
  4. BUDESONIDE/FORMOTEROL FUMARATE [Concomitant]
     Active Substance: BUDESONIDE\FORMOTEROL FUMARATE
     Dosage: EASYHALER 160 MG/ 4.5 MG/ INHALATION SPU, 2 INHALATIONS 2 TIMES DAILY
     Dates: start: 20190206
  5. OXALIPLATIN. [Suspect]
     Active Substance: OXALIPLATIN
     Indication: PRODUCT USED FOR UNKNOWN INDICATION
     Dosage: INFUSION SOLUTION
     Route: 042
     Dates: start: 20200908, end: 20200929
  6. THROMBY [Concomitant]
     Dosage: STRENTH?75 MG
     Dates: start: 20170908
  7. LORATADINE. [Concomitant]
     Active Substance: LORATADINE
     Dosage: 1 TABLET IF NEEDED
     Dates: start: 20170907
  8. BRICANYL [Concomitant]
     Active Substance: TERBUTALINE SULFATE
     Dosage: TURBOHALER, STRENGTH? 0.5 MG / DOSE, 1 INHALATION IF NECESSARY
     Dates: start: 20190206
  9. RAMIPRIL. [Concomitant]
     Active Substance: RAMIPRIL
     Dates: start: 20170908
  10. MINDIAB [Concomitant]
     Active Substance: GLIPIZIDE
     Dosage: STRENGTH? 5 MG
     Dates: start: 20170908
  11. ATORVASTATIN [Concomitant]
     Active Substance: ATORVASTATIN
     Dates: start: 20180721
  12. HYDROCHLOROTHIAZIDE. [Concomitant]
     Active Substance: HYDROCHLOROTHIAZIDE
     Dates: start: 20170908
  13. BETNOVAT [Concomitant]
     Active Substance: BETAMETHASONE
     Dosage: STRENGTH? 1 MG / ML
     Dates: start: 20170929
  14. CAPECITABINE. [Suspect]
     Active Substance: CAPECITABINE
     Indication: PRODUCT USED FOR UNKNOWN INDICATION
     Dosage: DAY 1?15 / EVERY 3 WEEKS DOSAGE 1800 MG X 2
     Dates: start: 20200908, end: 20201010
  15. BETNOVAT [Concomitant]
     Active Substance: BETAMETHASONE
     Dosage: STRENGTH? 0.1%, DOSE?2
     Dates: start: 20170929
  16. MINIDERM [Concomitant]
     Dosage: STRENGTH? 20%, DOSE?2
     Dates: start: 20170907
  17. INOLAXOL [Concomitant]
     Active Substance: HERBALS\KARAYA GUM
     Dosage: DOSE?1,ORAL POWDER IN SACHET
     Dates: start: 20200924
  18. OMEPRAZOLE. [Concomitant]
     Active Substance: OMEPRAZOLE
     Dates: start: 20170908

REACTIONS (6)
  - Gastrointestinal mucosal necrosis [Fatal]
  - Gastrointestinal oedema [Fatal]
  - Febrile neutropenia [Fatal]
  - Small intestinal haemorrhage [Fatal]
  - Thrombocytopenia [Fatal]
  - Septic shock [Fatal]

NARRATIVE: CASE EVENT DATE: 202010
